FAERS Safety Report 5737893-1 (Version None)
Quarter: 2008Q2

REPORT INFORMATION
  Report Type: 
  Country: None (occurrence: None)
  Receive Date: 20080514
  Receipt Date: 20080508
  Transmission Date: 20081010
  Serious: Yes (Hospitalization)
  Sender: FDA-Public Use
  Company Number: US-GENENTECH-260797

PATIENT
  Age: 48 Year
  Sex: Female
  Weight: 58 kg

DRUGS (4)
  1. ERLOTINIB [Suspect]
     Indication: HEAD AND NECK CANCER
     Dosage: UNK, UNK
     Dates: start: 20080303
  2. BEVACIZUMAB [Suspect]
     Indication: HEAD AND NECK CANCER
     Dosage: 10 MG/KG, Q2W
     Route: 042
     Dates: start: 20080317
  3. CISPLATIN [Suspect]
     Indication: HEAD AND NECK CANCER
     Dosage: 33 MG/M2, UNK
     Route: 042
     Dates: start: 20080331
  4. RADIATION THERAPY [Concomitant]
     Indication: HEAD AND NECK CANCER
     Dosage: UNK, BID

REACTIONS (4)
  - CONVULSION [None]
  - HYPERTENSION [None]
  - LEUKOENCEPHALOPATHY [None]
  - NAUSEA [None]
